FAERS Safety Report 4400672-1 (Version None)
Quarter: 2004Q3

REPORT INFORMATION
  Report Type: 
  Country: None (occurrence: None)
  Receive Date: 20040716
  Receipt Date: 20040716
  Transmission Date: 20050211
  Serious: Yes (Other)
  Sender: FDA-Public Use
  Company Number: None

PATIENT
  Age: 84 Year
  Sex: Male

DRUGS (5)
  1. ATENOLOL [Suspect]
     Indication: ATRIAL FIBRILLATION
     Dosage: 50 MG QD
     Dates: start: 20020619, end: 20040121
  2. ATENOLOL [Suspect]
     Indication: HYPERTENSION
     Dosage: 50 MG QD
     Dates: start: 20020619, end: 20040121
  3. DIGOXIN [Suspect]
     Indication: ATRIAL FIBRILLATION
     Dosage: 0.125 MG(M,W,AND FRIDAY)YEARS
     Dates: end: 20040121
  4. DIGOXIN [Suspect]
     Indication: HYPERTENSION
     Dosage: 0.125 MG(M,W,AND FRIDAY)YEARS
     Dates: end: 20040121
  5. DIGOXIN [Concomitant]

REACTIONS (1)
  - BRADYCARDIA [None]
